FAERS Safety Report 6644217-4 (Version None)
Quarter: 2010Q1

REPORT INFORMATION
  Report Type: 
  Country: None (occurrence: None)
  Receive Date: 20100319
  Receipt Date: 20100319
  Transmission Date: 20100710
  Serious: Yes (Other)
  Sender: FDA-Public Use
  Company Number: None

PATIENT
  Age: 78 Year
  Sex: Female
  Weight: 72.5755 kg

DRUGS (1)
  1. DOXYCYCLINE HCL [Suspect]
     Indication: GINGIVAL OPERATION
     Dosage: 100 MG 2 A DAY
     Dates: start: 20100222, end: 20100228

REACTIONS (3)
  - FLATULENCE [None]
  - MUSCLE SPASMS [None]
  - PAIN [None]
